FAERS Safety Report 10283062 (Version 2)
Quarter: 2014Q3

REPORT INFORMATION
  Report Type: Spontaneous
  Country: FI (occurrence: FI)
  Receive Date: 20140708
  Receipt Date: 20140717
  Transmission Date: 20150326
  Serious: Yes (Other)
  Sender: FDA-Public Use
  Company Number: FI-BEH-2014043745

PATIENT
  Age: 68 Year
  Sex: Female

DRUGS (2)
  1. HIZENTRA [Suspect]
     Active Substance: HUMAN IMMUNOGLOBULIN G
     Route: 058
     Dates: start: 201308
  2. HIZENTRA [Suspect]
     Active Substance: HUMAN IMMUNOGLOBULIN G
     Indication: SELECTIVE POLYSACCHARIDE ANTIBODY DEFICIENCY
     Route: 058
     Dates: start: 20131202

REACTIONS (3)
  - Injection site hypersensitivity [Recovered/Resolved]
  - Hypersensitivity [Recovered/Resolved]
  - Liquid product physical issue [Recovered/Resolved]

NARRATIVE: CASE EVENT DATE: 20131202
